FAERS Safety Report 25125716 (Version 2)
Quarter: 2025Q2

REPORT INFORMATION
  Report Type: Spontaneous
  Country: US (occurrence: US)
  Receive Date: 20250326
  Receipt Date: 20250404
  Transmission Date: 20250717
  Serious: Yes (Hospitalization)
  Sender: TEVA
  Company Number: US-TEVA-VS-3311288

PATIENT
  Age: 30 Year
  Sex: Female

DRUGS (1)
  1. METHOTREXATE [Suspect]
     Active Substance: METHOTREXATE
     Indication: Rheumatoid arthritis
     Route: 065

REACTIONS (6)
  - Vulvovaginal mycotic infection [Recovered/Resolved]
  - Urinary tract infection fungal [Recovering/Resolving]
  - Pyelonephritis fungal [Recovering/Resolving]
  - Bacterial pyelonephritis [Recovering/Resolving]
  - Klebsiella infection [Recovering/Resolving]
  - Candida infection [Recovered/Resolved]
